FAERS Safety Report 22092862 (Version 2)
Quarter: 2024Q1

REPORT INFORMATION
  Report Type: Other
  Country: US (occurrence: None)
  Receive Date: 20230314
  Receipt Date: 20240322
  Transmission Date: 20240410
  Serious: Yes (Hospitalization)
  Sender: FDA-Public Use
  Company Number: US-ROCHE-3046177

PATIENT
  Sex: Female

DRUGS (1)
  1. CELLCEPT [Suspect]
     Active Substance: MYCOPHENOLATE MOFETIL
     Indication: Interstitial lung disease
     Dosage: 3 TABLETS BID
     Route: 048

REACTIONS (4)
  - Aspiration [Unknown]
  - Foreign body in throat [Unknown]
  - Inappropriate schedule of product administration [Unknown]
  - Off label use [Unknown]
